FAERS Safety Report 14873129 (Version 2)
Quarter: 2018Q3

REPORT INFORMATION
  Report Type: Spontaneous
  Country: US (occurrence: US)
  Receive Date: 20180510
  Receipt Date: 20180718
  Transmission Date: 20181010
  Serious: No
  Sender: FDA-Public Use
  Company Number: US-009507513-1805USA002958

PATIENT
  Age: 24 Year
  Sex: Female

DRUGS (10)
  1. EMTRICITABINE (+) TENOFOVIR DISOPROXIL FUMARATE [Suspect]
     Active Substance: EMTRICITABINE\TENOFOVIR DISOPROXIL
     Dosage: TOTAL DAILY DOSE: 1 (UNITS NOT REPORTED), (STARTED ON WEEK 22 OF GESTATION)
     Route: 048
  2. ZIDOVUDINE. [Suspect]
     Active Substance: ZIDOVUDINE
     Dosage: TOTAL DAILY DOSE 2 (UNIT NOT PROVIDED)  (STARTED ON WEEK 34 OF GESTATION)
     Route: 042
  3. ATAZANAVIR. [Suspect]
     Active Substance: ATAZANAVIR SULFATE
     Dosage: TOTAL DAILY DOSE 300 (UNIT NOT PROVIDED)  (STARTED ON WEEK 14 OF GESTATION)
     Route: 048
  4. RITONAVIR. [Suspect]
     Active Substance: RITONAVIR
     Dosage: TOTAL DAILY DOSE 1 (UNIT NOT PROVIDED)  (STARTED ON WEEK 14 OF GESTATION)
     Route: 048
  5. ISENTRESS [Suspect]
     Active Substance: RALTEGRAVIR POTASSIUM
     Dosage: TOTAL DAILY DOSE: 800 (UNITS NOT REPORTED) (STARTED ON WEEK 32 OF GESTATION)
     Route: 048
  6. ZIDOVUDINE. [Suspect]
     Active Substance: ZIDOVUDINE
     Dosage: TOTAL DAILY DOSE 2 (UNIT NOT PROVIDED)  (STARTED ON WEEK 38 OF GESTATION)
     Route: 042
  7. EMTRICITABINE (+) TENOFOVIR DISOPROXIL FUMARATE [Suspect]
     Active Substance: EMTRICITABINE\TENOFOVIR DISOPROXIL
     Dosage: TOTAL DAILY DOSE: 1 (UNITS NOT REPORTED), (STARTED ON WEEK 14 OF GESTATION)
     Route: 048
  8. RILPIVIRINE [Suspect]
     Active Substance: RILPIVIRINE
     Dosage: TOTAL DAILY DOSE 1 (UNIT NOT PROVIDED)  (STARTED ON WEEK 22 OF GESTATION)
     Route: 048
  9. EMTRICITABINE (+) TENOFOVIR DISOPROXIL FUMARATE [Suspect]
     Active Substance: EMTRICITABINE\TENOFOVIR DISOPROXIL
     Dosage: TOTAL DAILY DOSE: 1 (UNITS NOT REPORTED), (STARTED ON WEEK 32 OF GESTATION)
     Route: 048
  10. ZIDOVUDINE. [Suspect]
     Active Substance: ZIDOVUDINE
     Dosage: TOTAL DAILY DOSE 1 (UNIT NOT PROVIDED)  (STARTED ON WEEK 38 OF GESTATION)
     Route: 042

REACTIONS (2)
  - Maternal exposure during pregnancy [Recovered/Resolved]
  - No adverse event [Unknown]
